FAERS Safety Report 12426257 (Version 1)
Quarter: 2016Q2

REPORT INFORMATION
  Report Type: Spontaneous
  Country: US (occurrence: US)
  Receive Date: 20160601
  Receipt Date: 20160601
  Transmission Date: 20160815
  Serious: No
  Sender: FDA-Public Use
  Company Number: US-BAYER-2016-106569

PATIENT
  Age: 51 Year
  Sex: Male
  Weight: 65.76 kg

DRUGS (2)
  1. ALEVE [Suspect]
     Active Substance: NAPROXEN SODIUM
     Indication: ANALGESIC THERAPY
     Dosage: UNK UNK, ONCE WITH LESS THAN 8 OUNCES OF WATER
     Route: 048
     Dates: start: 1990
  2. ALEVE [Suspect]
     Active Substance: NAPROXEN SODIUM
     Indication: ANALGESIC THERAPY
     Dosage: 2 DF, PRN, SOMETIMES THE CONSUMER TOOK TWO IN THE MORNING AND TWO AT NIGHT
     Route: 048
     Dates: start: 1990

REACTIONS (4)
  - Drug ineffective [None]
  - Dyspepsia [None]
  - Therapeutic response unexpected [None]
  - Product use issue [None]

NARRATIVE: CASE EVENT DATE: 20160530
